FAERS Safety Report 17674330 (Version 2)
Quarter: 2020Q3

REPORT INFORMATION
  Report Type: Spontaneous
  Country: US (occurrence: US)
  Receive Date: 20200416
  Receipt Date: 20200917
  Transmission Date: 20201102
  Serious: Yes (Other)
  Sender: FDA-Public Use
  Company Number: US-GILEAD-2020-0459228

PATIENT
  Age: 48 Year
  Sex: Male
  Weight: 88.44 kg

DRUGS (16)
  1. TRIZIVIR [Concomitant]
     Active Substance: ABACAVIR SULFATE\LAMIVUDINE\ZIDOVUDINE
  2. VIREAD [Suspect]
     Active Substance: TENOFOVIR DISOPROXIL FUMARATE
     Indication: HIV INFECTION
     Dosage: UNK
     Route: 048
     Dates: start: 200309, end: 200908
  3. EPIVIR [Concomitant]
     Active Substance: LAMIVUDINE
  4. VIDEX [Concomitant]
     Active Substance: DIDANOSINE
  5. INTELENCE [Concomitant]
     Active Substance: ETRAVIRINE
  6. COMBIVIR [Concomitant]
     Active Substance: LAMIVUDINE\ZIDOVUDINE
  7. COMPLERA [Suspect]
     Active Substance: EMTRICITABINE\RILPIVIRINE HYDROCHLORIDE\TENOFOVIR DISOPROXIL FUMARATE
     Indication: HIV INFECTION
     Dosage: UNK
     Route: 048
     Dates: start: 201508, end: 201812
  8. ODEFSEY [Concomitant]
     Active Substance: EMTRICITABINE\RILPIVIRINE HYDROCHLORIDE\TENOFOVIR ALAFENAMIDE FUMARATE
  9. KALETRA [Concomitant]
     Active Substance: LOPINAVIR\RITONAVIR
  10. REYATAZ [Concomitant]
     Active Substance: ATAZANAVIR SULFATE
  11. NORVIR [Concomitant]
     Active Substance: RITONAVIR
  12. TRUVADA [Suspect]
     Active Substance: EMTRICITABINE\TENOFOVIR DISOPROXIL FUMARATE
     Indication: HIV INFECTION
     Dosage: UNK
     Route: 048
     Dates: start: 200908, end: 201507
  13. ISENTRESS [Concomitant]
     Active Substance: RALTEGRAVIR POTASSIUM
  14. TIVICAY [Concomitant]
     Active Substance: DOLUTEGRAVIR SODIUM
  15. VIRACEPT [Concomitant]
     Active Substance: NELFINAVIR MESYLATE
  16. VITAMINS NOS [Concomitant]
     Active Substance: VITAMINS

REACTIONS (7)
  - Anxiety [Not Recovered/Not Resolved]
  - Chronic kidney disease [Not Recovered/Not Resolved]
  - Anhedonia [Not Recovered/Not Resolved]
  - Economic problem [Not Recovered/Not Resolved]
  - Emotional distress [Not Recovered/Not Resolved]
  - Depression [Not Recovered/Not Resolved]
  - Pain [Not Recovered/Not Resolved]

NARRATIVE: CASE EVENT DATE: 20180829
